FAERS Safety Report 9559398 (Version 3)
Quarter: 2013Q4

REPORT INFORMATION
  Report Type: Spontaneous
  Country: FR (occurrence: FR)
  Receive Date: 20130927
  Receipt Date: 20131225
  Transmission Date: 20140711
  Serious: Yes (Hospitalization, Other)
  Sender: FDA-Public Use
  Company Number: FR-AMGEN-FRASP2013067788

PATIENT
  Age: 43 Year
  Sex: Male
  Weight: 69 kg

DRUGS (4)
  1. ENBREL [Suspect]
     Indication: RHEUMATOID ARTHRITIS
     Dosage: 50 MG, WEEKLY
     Route: 065
     Dates: start: 20090605, end: 201308
  2. ENBREL [Suspect]
     Dosage: 50 MG, SINGLE
     Route: 065
     Dates: start: 20130831, end: 20130831
  3. METOJECT [Suspect]
     Indication: RHEUMATOID ARTHRITIS
     Dosage: 15 MG, WEEKLY
     Route: 058
     Dates: start: 20080101, end: 20130330
  4. DAFALGAN [Concomitant]
     Indication: ARTHRALGIA
     Dosage: BETWEEN 0 AND 2 G DAILY
     Route: 048
     Dates: start: 2005

REACTIONS (5)
  - Bone marrow failure [Not Recovered/Not Resolved]
  - Hepatocellular injury [Not Recovered/Not Resolved]
  - Cholestasis [Not Recovered/Not Resolved]
  - Hepatic steatosis [Unknown]
  - Diarrhoea [Recovered/Resolved]
